FAERS Safety Report 24234285 (Version 1)
Quarter: 2024Q3

REPORT INFORMATION
  Report Type: Report from Study
  Country: US (occurrence: US)
  Receive Date: 20240821
  Receipt Date: 20240821
  Transmission Date: 20241017
  Serious: Yes (Hospitalization, Other)
  Sender: BAUSCH AND LOMB
  Company Number: US-BAUSCH-BL-2024-012444

PATIENT
  Age: 81 Year
  Sex: Female

DRUGS (17)
  1. DILTIAZEM HYDROCHLORIDE [Suspect]
     Active Substance: DILTIAZEM HYDROCHLORIDE
     Indication: Heart rate abnormal
     Dosage: STARTED AROUND 2021-2022
     Route: 065
  2. DILTIAZEM HYDROCHLORIDE [Suspect]
     Active Substance: DILTIAZEM HYDROCHLORIDE
     Indication: Hypertension
     Dosage: AT ONE POINT HER PROVIDER DOUBLED DOSE^ OF DILTIAZEM 180 MG TO 2 CAPSULES (360 MG) ONCE DAILY
     Route: 065
  3. DILTIAZEM HYDROCHLORIDE [Suspect]
     Active Substance: DILTIAZEM HYDROCHLORIDE
     Route: 065
     Dates: end: 20240809
  4. AMLODIPINE [Concomitant]
     Active Substance: AMLODIPINE BESYLATE
     Indication: Product used for unknown indication
     Dosage: AS DIRECTED
  5. ELIQUIS [Concomitant]
     Active Substance: APIXABAN
     Indication: Product used for unknown indication
  6. ARNUITY ELLIPTA [Concomitant]
     Active Substance: FLUTICASONE FUROATE
     Indication: Product used for unknown indication
     Dosage: ARNUITY ELLIPTA INHALER?100 ?G
  7. CLONIDINE [Concomitant]
     Active Substance: CLONIDINE
     Indication: Product used for unknown indication
     Dosage: 0.2 MG/24 HR ?PATCH
  8. CLONIDINE [Concomitant]
     Active Substance: CLONIDINE
     Dosage: 0.1 MG/24 HR ?PATCH
  9. VITAMIN B12 [Concomitant]
     Active Substance: CYANOCOBALAMIN
     Indication: Product used for unknown indication
     Dosage: 1000 ?G
  10. MAGNESIUM GLYCINATE [Concomitant]
     Active Substance: MAGNESIUM GLYCINATE
     Indication: Product used for unknown indication
  11. ZOFRAN [Concomitant]
     Active Substance: ONDANSETRON HYDROCHLORIDE
     Indication: Product used for unknown indication
     Dosage: ZOFRAN ODT?AS NEEDED
     Route: 060
  12. REPATHA [Concomitant]
     Active Substance: EVOLOCUMAB
     Indication: Product used for unknown indication
     Dosage: ZOFRAN ODT?AS NEEDED
     Route: 058
  13. SPIRONOLACTONE [Concomitant]
     Active Substance: SPIRONOLACTONE
     Indication: Product used for unknown indication
  14. VALSARTAN [Concomitant]
     Active Substance: VALSARTAN
     Indication: Product used for unknown indication
  15. VENTOLIN HFA [Concomitant]
     Active Substance: ALBUTEROL SULFATE
     Indication: Product used for unknown indication
     Dosage: 2 AS NEEDED INHALER
  16. ATIVAN [Concomitant]
     Active Substance: LORAZEPAM
     Indication: Product used for unknown indication
     Dosage: AS NEEDED
  17. ZOLPIDEM TARTRATE [Concomitant]
     Active Substance: ZOLPIDEM TARTRATE
     Indication: Product used for unknown indication

REACTIONS (8)
  - Inappropriate antidiuretic hormone secretion [Unknown]
  - Polyneuropathy [Unknown]
  - Neuropathy peripheral [Unknown]
  - Atrial fibrillation [Not Recovered/Not Resolved]
  - Abdominal discomfort [Unknown]
  - Tooth disorder [Unknown]
  - Constipation [Unknown]
  - Dizziness [Unknown]

NARRATIVE: CASE EVENT DATE: 20230101
